FAERS Safety Report 9019627 (Version 2)
Quarter: 2013Q1

REPORT INFORMATION
  Report Type: Report from Study
  Country: GB (occurrence: GB)
  Receive Date: 20130118
  Receipt Date: 20130213
  Transmission Date: 20140127
  Serious: Yes (Hospitalization)
  Sender: FDA-Public Use
  Company Number: GB-ROCHE-1177898

PATIENT
  Age: 46 None
  Sex: Female
  Weight: 81.4 kg

DRUGS (12)
  1. TRASTUZUMAB [Suspect]
     Indication: BREAST CANCER
     Dosage: LOADING DOSE
     Route: 042
     Dates: start: 20121227
  2. TRASTUZUMAB [Suspect]
     Dosage: MAINTENANCE DOSE
     Route: 042
  3. DOCETAXEL [Suspect]
     Indication: BREAST CANCER
     Dosage: DATE OF LAST DOSE PRIOR TO EVENT: 28/DEC/2012, 190MG (AS PER PROTOCOL)
     Route: 042
     Dates: start: 20121228
  4. PEGFILGRASTIM [Concomitant]
     Dosage: TAKEN WITH CHEMOTHERAPY
     Route: 065
  5. IMODIUM [Concomitant]
     Route: 065
     Dates: start: 20130104
  6. METOCLOPRAMIDE [Concomitant]
     Route: 065
     Dates: start: 20121228
  7. DEXAMETHASONE [Concomitant]
     Dosage: GIVEN WITH CHEMOTHERAPY
     Route: 065
     Dates: start: 20121024
  8. APREPITANT [Concomitant]
     Route: 065
     Dates: start: 20121228
  9. APREPITANT [Concomitant]
     Route: 065
     Dates: start: 20121229
  10. G-CSF [Concomitant]
     Dosage: GIVEN WITH CHEMOTHERAPY
     Route: 065
  11. PERTUZUMAB [Suspect]
     Indication: BREAST CANCER
     Dosage: LOADING DOSE
     Route: 042
     Dates: start: 20121228
  12. PERTUZUMAB [Suspect]
     Dosage: MAINTENANCE DOSE.
     Route: 042

REACTIONS (1)
  - Mucosal inflammation [Not Recovered/Not Resolved]
